FAERS Safety Report 8701201 (Version 2)
Quarter: 2012Q4

REPORT INFORMATION
  Report Type: 
  Country: US (occurrence: US)
  Receive Date: 20120802
  Receipt Date: 20120904
  Transmission Date: 20130627
  Serious: No
  Sender: FDA-Public Use
  Company Number: US-AMGEN-USASP2012046157

PATIENT
  Age: 58 Year
  Sex: Female
  Weight: 69.39 kg

DRUGS (14)
  1. ENBREL [Suspect]
     Indication: ANKYLOSING SPONDYLITIS
     Dosage: 50 mg, qwk
     Dates: start: 20120506, end: 20120624
  2. ENBREL [Suspect]
     Indication: PSORIASIS
  3. FOLIC ACID [Concomitant]
     Dosage: 1 mg, daily
     Route: 048
  4. POTASSIUM CHLORIDE [Concomitant]
     Dosage: 10 mEq, q8h
     Route: 048
  5. PREDNISONE [Concomitant]
     Dosage: 20 mg, UNK, as directed
     Route: 048
  6. ACYCLOVIR                          /00587301/ [Concomitant]
     Dosage: UNK UNK, prn
     Route: 048
  7. FOSAMAX [Concomitant]
     Dosage: 70 mg, qwk
     Route: 048
  8. GLUCOSAMINE CHONDROITIN COMPLEX    /06358901/ [Concomitant]
     Dosage: 2 tablets daily
     Route: 048
  9. INDOMETHACIN                       /00003801/ [Concomitant]
     Dosage: UNK UNK, prn
     Route: 048
  10. NEXIUM                             /01479302/ [Concomitant]
     Dosage: 40 mg, qd
     Route: 048
  11. NORVASC [Concomitant]
     Dosage: 10 mg, qd
     Route: 048
  12. PREMARIN [Concomitant]
     Dosage: 1.25 mg, qd
     Route: 048
  13. TRIAMTERENE/HCTZ [Concomitant]
     Dosage: 37.5-25 mg, qd
     Route: 048
  14. HUMIRA [Concomitant]
     Dosage: 40 mg, qd
     Route: 058

REACTIONS (1)
  - Psoriasis [Not Recovered/Not Resolved]
